FAERS Safety Report 9101443 (Version 1)
Quarter: 2013Q1

REPORT INFORMATION
  Report Type: Report from Study
  Country: US (occurrence: US)
  Receive Date: 20130218
  Receipt Date: 20130218
  Transmission Date: 20140127
  Serious: No
  Sender: FDA-Public Use
  Company Number: US-ABBOTT-12P-163-0989741-00

PATIENT
  Sex: Female

DRUGS (1)
  1. SIMCOR 500/20 [Suspect]
     Indication: PRODUCT USED FOR UNKNOWN INDICATION
     Dosage: 500/20 MG, AT BEDTIME
     Dates: start: 201209

REACTIONS (6)
  - Flushing [Recovered/Resolved]
  - Pruritus [Recovered/Resolved]
  - Generalised erythema [Recovered/Resolved]
  - Flushing [Recovered/Resolved]
  - Rash generalised [Recovered/Resolved]
  - Gastrooesophageal reflux disease [Not Recovered/Not Resolved]
